FAERS Safety Report 13028330 (Version 1)
Quarter: 2016Q4

REPORT INFORMATION
  Report Type: Spontaneous
  Country: US (occurrence: US)
  Receive Date: 20161214
  Receipt Date: 20161214
  Transmission Date: 20170207
  Serious: Yes (Death, Other)
  Sender: FDA-Public Use
  Company Number: US-MYLANLABS-2016M1054749

PATIENT

DRUGS (1)
  1. ONDANSETRON [Suspect]
     Active Substance: ONDANSETRON
     Indication: GASTROENTERITIS
     Dosage: ONE DOSE OF 0.5 MG
     Route: 048

REACTIONS (2)
  - Arrhythmia [Fatal]
  - Cardiac arrest [Fatal]
